FAERS Safety Report 11874634 (Version 2)
Quarter: 2016Q1

REPORT INFORMATION
  Report Type: Spontaneous
  Country: US (occurrence: US)
  Receive Date: 20151229
  Receipt Date: 20160205
  Transmission Date: 20160526
  Serious: Yes (Hospitalization)
  Sender: FDA-Public Use
  Company Number: US-PFIZER INC-2015465044

PATIENT
  Age: 20 Year
  Sex: Female

DRUGS (5)
  1. CORICIDIN [Concomitant]
     Active Substance: ACETAMINOPHEN\CHLORPHENIRAMINE MALEATE
     Dosage: (DXM 30 MG, CHLORPHENIRAMINE 4 MG) TABLETS AT 5 TIMES THE RECOMMENDED AMOUNT
  2. DEXTROMETHORPHAN HBR [Suspect]
     Active Substance: DEXTROMETHORPHAN HYDROBROMIDE
     Dosage: UNK
  3. CHLORPHENIRAMINE. [Concomitant]
     Active Substance: CHLORPHENIRAMINE
     Dosage: UNK
  4. PHENCYCLIDINE [Concomitant]
     Active Substance: PHENCYCLIDINE
     Dosage: UNK
  5. DEXTRORPHAN [Concomitant]
     Dosage: UNK

REACTIONS (3)
  - Intentional product misuse [Unknown]
  - Toxicity to various agents [Unknown]
  - Mania [Recovered/Resolved]
